FAERS Safety Report 20546624 (Version 2)
Quarter: 2022Q1

REPORT INFORMATION
  Report Type: Spontaneous
  Country: CO (occurrence: CO)
  Receive Date: 20220303
  Receipt Date: 20220316
  Transmission Date: 20220424
  Serious: Yes (Death, Hospitalization, Other)
  Sender: FDA-Public Use
  Company Number: CO-PFIZER INC-202200315551

PATIENT
  Age: 86 Year
  Sex: Female

DRUGS (1)
  1. LYRICA [Suspect]
     Active Substance: PREGABALIN
     Indication: Pain
     Dosage: 50 MG
     Route: 048
     Dates: start: 20211223

REACTIONS (4)
  - Cerebrovascular accident [Fatal]
  - Vein disorder [Unknown]
  - Diabetes mellitus [Unknown]
  - Leg amputation [Unknown]

NARRATIVE: CASE EVENT DATE: 20220103
